FAERS Safety Report 10121011 (Version 1)
Quarter: 2014Q2

REPORT INFORMATION
  Report Type: Spontaneous
  Country: CH (occurrence: CH)
  Receive Date: 20140425
  Receipt Date: 20140425
  Transmission Date: 20141212
  Serious: Yes (Other)
  Sender: FDA-Public Use
  Company Number: CH-GLAXOSMITHKLINE-B0988712A

PATIENT
  Age: 19 Year
  Sex: Male

DRUGS (2)
  1. TOPOTECAN [Suspect]
     Indication: ALVEOLAR RHABDOMYOSARCOMA
     Route: 065
     Dates: start: 201402
  2. CYCLOPHOSPHAMIDE [Suspect]
     Indication: ALVEOLAR RHABDOMYOSARCOMA
     Route: 065
     Dates: start: 201402

REACTIONS (3)
  - Leukopenia [Unknown]
  - Thrombocytopenia [Unknown]
  - Disease progression [Unknown]
